FAERS Safety Report 6637699-5 (Version None)
Quarter: 2010Q1

REPORT INFORMATION
  Report Type: 
  Country: None (occurrence: None)
  Receive Date: 20100317
  Receipt Date: 20100311
  Transmission Date: 20100710
  Serious: Yes (Other)
  Sender: FDA-Public Use
  Company Number: US-GENZYME-CERZ-1001214

PATIENT
  Sex: Male
  Weight: 65 kg

DRUGS (2)
  1. CEREZYME [Suspect]
     Indication: GAUCHER'S DISEASE
     Dosage: 2800 U, Q2W
     Route: 042
  2. CEREZYME [Suspect]
     Dosage: 3000 U, Q2W
     Route: 042

REACTIONS (6)
  - CATARACT [None]
  - EYE DISORDER [None]
  - GOUT [None]
  - INTERVERTEBRAL DISC PROTRUSION [None]
  - PERIARTHRITIS [None]
  - PULMONARY HYPERTENSION [None]
